FAERS Safety Report 10686776 (Version 2)
Quarter: 2015Q1

REPORT INFORMATION
  Report Type: Spontaneous
  Country: US (occurrence: US)
  Receive Date: 20150101
  Receipt Date: 20150309
  Transmission Date: 20150720
  Serious: No
  Sender: FDA-Public Use
  Company Number: US-ASTRAZENECA-2014SE81729

PATIENT
  Age: 23768 Day
  Sex: Male

DRUGS (2)
  1. BRILINTA [Suspect]
     Active Substance: TICAGRELOR
     Indication: ACUTE CORONARY SYNDROME
     Route: 048
     Dates: start: 20140620
  2. BRILINTA [Suspect]
     Active Substance: TICAGRELOR
     Indication: PERCUTANEOUS CORONARY INTERVENTION
     Route: 048
     Dates: start: 20140620

REACTIONS (3)
  - Dyspnoea [Recovered/Resolved]
  - Drug dose omission [Unknown]
  - Oxygen saturation decreased [Unknown]

NARRATIVE: CASE EVENT DATE: 20140620
